FAERS Safety Report 8188724-4 (Version None)
Quarter: 2012Q1

REPORT INFORMATION
  Report Type: 
  Country: None (occurrence: None)
  Receive Date: 20120306
  Receipt Date: 20120216
  Transmission Date: 20120608
  Serious: Yes (Other)
  Sender: FDA-Public Use
  Company Number: CHPA2012CA003240

PATIENT
  Age: 44 Year
  Sex: Female

DRUGS (3)
  1. NICODERM [Suspect]
     Indication: SMOKING CESSATION THERAPY
     Dosage: UNK, UNK
     Route: 062
     Dates: start: 20111125, end: 20111201
  2. NICOTINE [Suspect]
     Dosage: UNK, UNK
     Route: 048
  3. NICOTINE [Suspect]
     Indication: SMOKING CESSATION THERAPY
     Dosage: 10-12 PIECES/DAY
     Route: 048
     Dates: start: 20111125

REACTIONS (4)
  - TREATMENT NONCOMPLIANCE [None]
  - CHEMICAL INJURY [None]
  - BURNING SENSATION [None]
  - OVERDOSE [None]
